FAERS Safety Report 8557442-2 (Version None)
Quarter: 2012Q3

REPORT INFORMATION
  Report Type: 
  Country: None (occurrence: None)
  Receive Date: 20120801
  Receipt Date: 20120727
  Transmission Date: 20120928
  Serious: Yes (Death)
  Sender: FDA-Public Use
  Company Number: JP-ELI_LILLY_AND_COMPANY-JP201207001140

PATIENT
  Sex: Male
  Weight: 92 kg

DRUGS (4)
  1. VITAMIN B12 [Concomitant]
     Indication: PROPHYLAXIS
     Dosage: 1 MG, UNK
     Route: 030
     Dates: start: 20120530
  2. PARAPLATIN AQ [Concomitant]
     Indication: LUNG ADENOCARCINOMA STAGE IV
     Dosage: UNK
     Route: 042
     Dates: start: 20120604, end: 20120609
  3. FOLIC ACID [Concomitant]
     Indication: PROPHYLAXIS
     Dosage: 1 G, UNK
     Route: 048
     Dates: start: 20120530, end: 20120609
  4. ALIMTA [Suspect]
     Indication: LUNG ADENOCARCINOMA STAGE IV
     Dosage: 500 MG/M2, UNK
     Route: 042
     Dates: start: 20120604, end: 20120609

REACTIONS (2)
  - INTERSTITIAL LUNG DISEASE [None]
  - OFF LABEL USE [None]
